FAERS Safety Report 8729609 (Version 1)
Quarter: 2012Q4

REPORT INFORMATION
  Report Type: 
  Country: US (occurrence: US)
  Receive Date: 20120912
  Receipt Date: 20120912
  Transmission Date: 20130627
  Serious: Yes (Other)
  Sender: FDA-Public Use
  Company Number: US-ROCHE-1101446

PATIENT
  Age: 50 Year
  Sex: Female

DRUGS (4)
  1. ACTIVASE [Suspect]
     Indication: ACUTE MYOCARDIAL INFARCTION
     Route: 065
  2. NITROGLYCERINE [Concomitant]
  3. HEPARIN [Concomitant]
  4. VALIUM [Concomitant]

REACTIONS (3)
  - Muscle spasms [Recovering/Resolving]
  - Nausea [Recovering/Resolving]
  - Fatigue [Recovering/Resolving]
